FAERS Safety Report 10671604 (Version 2)
Quarter: 2014Q4

REPORT INFORMATION
  Report Type: Spontaneous
  Country: US (occurrence: US)
  Receive Date: 20141223
  Receipt Date: 20141226
  Transmission Date: 20150529
  Serious: Yes (Other)
  Sender: FDA-Public Use
  Company Number: US-BAYER-2014-183699

PATIENT
  Age: 29 Year
  Sex: Female

DRUGS (1)
  1. MIRENA [Suspect]
     Active Substance: LEVONORGESTREL
     Indication: CONTRACEPTION
     Dosage: 20 MCG/24HR, CONT
     Route: 015
     Dates: start: 20141210

REACTIONS (3)
  - Procedural haemorrhage [None]
  - Uterine perforation [None]
  - Device difficult to use [None]

NARRATIVE: CASE EVENT DATE: 20141210
